FAERS Safety Report 13531152 (Version 1)
Quarter: 2017Q2

REPORT INFORMATION
  Report Type: Spontaneous
  Country: US (occurrence: US)
  Receive Date: 20170510
  Receipt Date: 20170510
  Transmission Date: 20170830
  Serious: Yes (Other)
  Sender: FDA-Public Use
  Company Number: None

PATIENT
  Age: 60 Year
  Sex: Female
  Weight: 50.35 kg

DRUGS (10)
  1. RECLAST [Suspect]
     Active Substance: ZOLEDRONIC ACID
     Indication: OSTEOPOROSIS
     Dosage: FREQUENCY - 1X PER YEAR
     Route: 042
  2. PROBIOTIC [Concomitant]
     Active Substance: PROBIOTICS NOS
  3. CALCIUM +D [Concomitant]
     Active Substance: CALCIUM\VITAMIN D
  4. PREVIDENT TOOTHPASTE [Concomitant]
  5. MELATONIN [Concomitant]
     Active Substance: MELATONIN
  6. CENTRUM SILVER FOR WOMEN [Concomitant]
     Active Substance: MINERALS\VITAMINS
  7. FLONASE [Concomitant]
     Active Substance: FLUTICASONE PROPIONATE
  8. FISH OIL [Concomitant]
     Active Substance: FISH OIL
  9. ESTRACE [Concomitant]
     Active Substance: ESTRADIOL
  10. ZANTAC [Concomitant]
     Active Substance: RANITIDINE HYDROCHLORIDE

REACTIONS (3)
  - Migraine [None]
  - Eye disorder [None]
  - Visual impairment [None]

NARRATIVE: CASE EVENT DATE: 20170426
